FAERS Safety Report 10176187 (Version 1)
Quarter: 2014Q2

REPORT INFORMATION
  Report Type: Spontaneous
  Country: US (occurrence: US)
  Receive Date: 20140516
  Receipt Date: 20140516
  Transmission Date: 20141212
  Serious: Yes (Other)
  Sender: FDA-Public Use
  Company Number: US-BEH-2014042494

PATIENT
  Age: 51 Year
  Sex: Female
  Weight: 72 kg

DRUGS (16)
  1. HIZENTRA [Suspect]
     Indication: IMMUNODEFICIENCY COMMON VARIABLE
  2. HIZENTRA [Suspect]
     Dosage: 3-4 SITES OVER 1-2 HOURS
     Route: 058
  3. ACETAMINOPHEN [Concomitant]
  4. DIPHENHYDRAMINE [Concomitant]
  5. LIDOCAINE/PRILOCAINE [Concomitant]
  6. PREDNISONE [Concomitant]
  7. EPI-PEN AUTOINJECTOR [Concomitant]
  8. FENTANYL PATCH [Concomitant]
  9. DIAZEPAM [Concomitant]
  10. BUPROPION HCL [Concomitant]
  11. HYDROXYZINE HCL [Concomitant]
  12. TRAZODONE [Concomitant]
  13. SPIRIVA [Concomitant]
  14. PROZAC [Concomitant]
  15. DILAUDID [Concomitant]
  16. EQL VITAMIN C [Concomitant]

REACTIONS (5)
  - Infusion site cellulitis [Unknown]
  - Pyrexia [Unknown]
  - Infusion site warmth [Unknown]
  - Infusion site erythema [Unknown]
  - Infusion site swelling [Unknown]
